FAERS Safety Report 14589889 (Version 2)
Quarter: 2018Q1

REPORT INFORMATION
  Report Type: Spontaneous
  Country: GB (occurrence: GB)
  Receive Date: 20180302
  Receipt Date: 20180308
  Transmission Date: 20180509
  Serious: Yes (Hospitalization, Other)
  Sender: FDA-Public Use
  Company Number: GB-STRIDES ARCOLAB LIMITED-2018SP001354

PATIENT

DRUGS (7)
  1. TACROLIMUS. [Suspect]
     Active Substance: TACROLIMUS
     Indication: LIVER TRANSPLANT
     Dosage: UNKNOWN
     Route: 065
  2. TACROLIMUS. [Suspect]
     Active Substance: TACROLIMUS
     Dosage: UNKNOWN, (DOSE WAS REDUCED)
     Route: 065
  3. PREDNISOLONE. [Suspect]
     Active Substance: PREDNISOLONE
     Dosage: UNKNOWN, (DOSE WAS REDUCED)
     Route: 065
  4. IMMUNE GLOBULIN [Suspect]
     Active Substance: HUMAN IMMUNOGLOBULIN G
     Indication: IMMUNODEFICIENCY COMMON VARIABLE
     Dosage: UNKNOWN, FORTNIGHTLY
     Route: 042
  5. AZATHIOPRINE. [Suspect]
     Active Substance: AZATHIOPRINE
     Indication: LIVER TRANSPLANT
     Dosage: UNKNOWN
     Route: 065
  6. PREDNISOLONE. [Suspect]
     Active Substance: PREDNISOLONE
     Indication: LIVER TRANSPLANT
     Dosage: UNKNOWN
     Route: 065
  7. MYCOPHENOLATE MOFETIL. [Suspect]
     Active Substance: MYCOPHENOLATE MOFETIL
     Indication: LIVER TRANSPLANT
     Dosage: UNKNOWN
     Route: 065

REACTIONS (14)
  - Escherichia sepsis [Unknown]
  - Cough [Unknown]
  - Bronchopulmonary aspergillosis [Unknown]
  - Anuria [Unknown]
  - Cytomegalovirus infection [Unknown]
  - Headache [Unknown]
  - Escherichia infection [Unknown]
  - Proctitis infectious [Recovered/Resolved]
  - Candida infection [Unknown]
  - Dyspnoea [Unknown]
  - Acute kidney injury [Unknown]
  - Muscular weakness [Unknown]
  - Enterococcal infection [Unknown]
  - Cerebral aspergillosis [Unknown]
